FAERS Safety Report 25646871 (Version 1)
Quarter: 2025Q3

REPORT INFORMATION
  Report Type: Other
  Country: CA (occurrence: CA)
  Receive Date: 20250805
  Receipt Date: 20250805
  Transmission Date: 20251020
  Serious: Yes (Death, Other)
  Sender: APOTEX
  Company Number: CA-APOTEX-2025AP010835

PATIENT
  Age: 88 Year
  Sex: Female

DRUGS (1)
  1. IMATINIB [Suspect]
     Active Substance: IMATINIB
     Indication: Leukaemia
     Dosage: 1 DOSAGE FORM, QD
     Route: 048
     Dates: start: 20240626

REACTIONS (1)
  - Death [Fatal]

NARRATIVE: CASE EVENT DATE: 20250722
